FAERS Safety Report 18992590 (Version 2)
Quarter: 2021Q2

REPORT INFORMATION
  Report Type: Report from Study
  Country: US (occurrence: US)
  Receive Date: 20210310
  Receipt Date: 20210629
  Transmission Date: 20210717
  Serious: Yes (Other)
  Sender: FDA-Public Use
  Company Number: US-PUMA BIOTECHNOLOGY, LTD.-2021US002037

PATIENT

DRUGS (2)
  1. NERLYNX [Suspect]
     Active Substance: NERATINIB
     Dosage: 3 TABLETS (120 MG), DAILY
     Route: 048
     Dates: start: 2021, end: 20210318
  2. NERLYNX [Suspect]
     Active Substance: NERATINIB
     Indication: BREAST CANCER FEMALE
     Dosage: 3 TABLETS (120 MG), DAILY
     Route: 048
     Dates: start: 20210217, end: 20210226

REACTIONS (4)
  - Renal impairment [Unknown]
  - Diarrhoea [Not Recovered/Not Resolved]
  - Dehydration [Unknown]
  - Underdose [Unknown]

NARRATIVE: CASE EVENT DATE: 2021
